FAERS Safety Report 21016090 (Version 1)
Quarter: 2022Q2

REPORT INFORMATION
  Report Type: Spontaneous
  Country: US (occurrence: None)
  Receive Date: 20220627
  Receipt Date: 20220627
  Transmission Date: 20220721
  Serious: Yes (Hospitalization)
  Sender: FDA-Public Use
  Company Number: None

PATIENT
  Age: 36 Year
  Sex: Male

DRUGS (1)
  1. BUPROPION HYDROCHLORIDE [Suspect]
     Active Substance: BUPROPION HYDROCHLORIDE
     Indication: Depression
     Dosage: FREQUENCY : DAILY;?
     Route: 048
     Dates: start: 20120502, end: 20220410

REACTIONS (5)
  - Seizure [None]
  - Electrocardiogram QT prolonged [None]
  - Mental status changes [None]
  - Overdose [None]
  - Urinary retention [None]

NARRATIVE: CASE EVENT DATE: 20220409
